FAERS Safety Report 4699150-4 (Version None)
Quarter: 2005Q2

REPORT INFORMATION
  Report Type: 
  Country: None (occurrence: None)
  Receive Date: 20050623
  Receipt Date: 20050623
  Transmission Date: 20051028
  Serious: Yes (Death, Hospitalization)
  Sender: FDA-Public Use
  Company Number: None

PATIENT
  Sex: Female
  Weight: 131.3 kg

DRUGS (5)
  1. DOCETAXEL [Suspect]
     Indication: BREAST CANCER
     Dates: start: 20050222, end: 20050609
  2. DOXORUBICIN [Suspect]
     Indication: BREAST CANCER
     Dates: start: 20050222, end: 20050609
  3. GEMCITABINE [Suspect]
     Indication: BREAST CANCER
     Dates: start: 20050222
  4. PACLITAXEL [Suspect]
     Indication: BREAST CANCER
     Dates: start: 20050222
  5. CYCLOPHOSPHAMIDE [Suspect]
     Indication: BREAST CANCER
     Dates: start: 20050222, end: 20050609

REACTIONS (4)
  - BLOOD PRESSURE DECREASED [None]
  - CARDIO-RESPIRATORY ARREST [None]
  - ORAL INTAKE REDUCED [None]
  - PULMONARY EMBOLISM [None]
